FAERS Safety Report 4499307-1 (Version None)
Quarter: 2004Q3

REPORT INFORMATION
  Report Type: 
  Country: None (occurrence: None)
  Receive Date: 20040928
  Receipt Date: 20040728
  Transmission Date: 20050211
  Serious: No
  Sender: FDA-Public Use
  Company Number: 04P-163-0268383-00

PATIENT
  Age: 74 Year
  Sex: Female
  Weight: 70.3075 kg

DRUGS (7)
  1. HUMIRA [Suspect]
     Dosage: 40 MG, 1 IN 2 WK, SUBCUTANEOUS
     Route: 058
     Dates: start: 20040401
  2. LEFLUNOMIDE [Concomitant]
  3. CALCIUM D3 ^STADA^ [Concomitant]
  4. RISEDRONATE SODIUM [Concomitant]
  5. SERTRALINE HYDROCHLORIDE [Concomitant]
  6. ESOMEPRAZOLE [Concomitant]
  7. ACETYLSALICYLIC ACID [Concomitant]

REACTIONS (2)
  - CONTUSION [None]
  - RED BLOOD CELL COUNT DECREASED [None]
